FAERS Safety Report 20202935 (Version 1)
Quarter: 2021Q4

REPORT INFORMATION
  Report Type: Report from Study
  Country: US (occurrence: US)
  Receive Date: 20211218
  Receipt Date: 20211218
  Transmission Date: 20220304
  Serious: Yes (Hospitalization, Other)
  Sender: FDA-Public Use
  Company Number: US-ABBVIE-21K-163-4196267-00

PATIENT
  Sex: Male
  Weight: 95.340 kg

DRUGS (4)
  1. HUMIRA [Suspect]
     Active Substance: ADALIMUMAB
     Indication: Hidradenitis
     Dosage: CITRATE FREE
     Route: 058
     Dates: start: 201702, end: 202101
  2. HUMIRA [Suspect]
     Active Substance: ADALIMUMAB
     Dosage: STRETCHING OUT HIS HUMIRA EVERY TWO WEEKS OR THREE WEEKS
     Route: 058
     Dates: start: 2021, end: 2021
  3. HUMIRA [Suspect]
     Active Substance: ADALIMUMAB
     Dosage: CITRATE FREE?LOADING DOSE
     Route: 058
     Dates: start: 20211111, end: 20211111
  4. HUMIRA [Suspect]
     Active Substance: ADALIMUMAB
     Dosage: CITRATE FREE?LOADING DOSE
     Route: 058
     Dates: start: 20211213, end: 20211213

REACTIONS (12)
  - Swelling [Unknown]
  - Hypertension [Recovered/Resolved]
  - Hidradenitis [Recovering/Resolving]
  - Wrong technique in product usage process [Unknown]
  - Intentional product misuse [Unknown]
  - Joint range of motion decreased [Recovered/Resolved]
  - Axillary pain [Recovered/Resolved]
  - Weight increased [Not Recovered/Not Resolved]
  - Burning sensation [Recovered/Resolved]
  - Peripheral swelling [Recovered/Resolved]
  - Pain of skin [Recovering/Resolving]
  - Abscess [Unknown]

NARRATIVE: CASE EVENT DATE: 20210101
